FAERS Safety Report 8600128-6 (Version None)
Quarter: 2012Q3

REPORT INFORMATION
  Report Type: 
  Country: None (occurrence: None)
  Receive Date: 20120817
  Receipt Date: 20120809
  Transmission Date: 20120928
  Serious: Yes (Hospitalization, Other)
  Sender: FDA-Public Use
  Company Number: CA-AMGEN-CANSP2012050191

PATIENT
  Sex: Male

DRUGS (3)
  1. XGEVA [Suspect]
     Indication: PRODUCT USED FOR UNKNOWN INDICATION
     Dosage: UNK
     Dates: start: 20120101
  2. CORTISONE ACETATE [Concomitant]
  3. ANTINEOPLASTIC AGENTS [Concomitant]

REACTIONS (2)
  - OSTEONECROSIS [None]
  - ARTHRALGIA [None]
